FAERS Safety Report 6195788-6 (Version None)
Quarter: 2009Q2

REPORT INFORMATION
  Report Type: 
  Country: None (occurrence: None)
  Receive Date: 20090515
  Receipt Date: 20090511
  Transmission Date: 20091009
  Serious: Yes (Life-Threatening)
  Sender: FDA-Public Use
  Company Number: CIO09010651

PATIENT
  Sex: Female

DRUGS (1)
  1. DAYQUIL NON-DROWSY SINUS (PARACETAMOL 325 MG, PSEUDOEPHEDRINE HYDROCHL [Suspect]
     Indication: SINUS DISORDER
     Dosage: ORAL
     Route: 048

REACTIONS (3)
  - CHOKING [None]
  - FOREIGN BODY TRAUMA [None]
  - OROPHARYNGEAL PAIN [None]
